FAERS Safety Report 23126912 (Version 2)
Quarter: 2023Q4

REPORT INFORMATION
  Report Type: Spontaneous
  Country: DE (occurrence: DE)
  Receive Date: 20231030
  Receipt Date: 20231108
  Transmission Date: 20240109
  Serious: Yes (Hospitalization)
  Sender: FDA-Public Use
  Company Number: DE-SAMSUNG BIOEPIS-SB-2023-15666

PATIENT
  Age: 52 Year
  Sex: Male
  Weight: 70 kg

DRUGS (6)
  1. DOCETAXEL [Suspect]
     Active Substance: DOCETAXEL\DOCETAXEL ANHYDROUS
     Indication: HER2 positive gastric cancer
     Dosage: 89 MG
     Route: 065
     Dates: start: 20230427
  2. FLUOROURACIL [Suspect]
     Active Substance: FLUOROURACIL
     Indication: HER2 positive gastric cancer
     Dosage: 4650 MG
     Route: 065
     Dates: start: 20230427
  3. LEUCOVORIN [Suspect]
     Active Substance: LEUCOVORIN\LEUCOVORIN CALCIUM
     Indication: HER2 positive gastric cancer
     Dosage: 358 MG
     Route: 065
     Dates: start: 20230427
  4. OXALIPLATIN [Suspect]
     Active Substance: OXALIPLATIN
     Indication: HER2 positive gastric cancer
     Dosage: 152 MG
     Route: 065
     Dates: start: 20230427
  5. ONTRUZANT [Suspect]
     Active Substance: TRASTUZUMAB-DTTB
     Indication: HER2 positive gastric cancer
     Dosage: 544.000MG
     Route: 065
     Dates: start: 20230427
  6. PEMBROLIZUMAB [Suspect]
     Active Substance: PEMBROLIZUMAB
     Indication: HER2 positive gastric cancer
     Dosage: UNK, (200 (UNSPECIFIED UNIT))
     Route: 065
     Dates: start: 20230427

REACTIONS (4)
  - Gastrointestinal obstruction [Recovering/Resolving]
  - Diarrhoea [Recovered/Resolved]
  - Ileus [Recovering/Resolving]
  - Product use in unapproved indication [Unknown]

NARRATIVE: CASE EVENT DATE: 20230602
